FAERS Safety Report 10279794 (Version 1)
Quarter: 2014Q3

REPORT INFORMATION
  Report Type: Spontaneous
  Country: US (occurrence: None)
  Receive Date: 20140702
  Receipt Date: 20140702
  Transmission Date: 20150326
  Serious: Yes (Hospitalization)
  Sender: FDA-Public Use
  Company Number: None

PATIENT
  Age: 71 Year
  Sex: Male
  Weight: 126 kg

DRUGS (1)
  1. INTRON A [Suspect]
     Active Substance: INTERFERON ALFA-2B
     Dates: end: 20140516

REACTIONS (4)
  - Dyspnoea [None]
  - Pleural effusion [None]
  - Atrial fibrillation [None]
  - Cough [None]

NARRATIVE: CASE EVENT DATE: 20140620
